FAERS Safety Report 25483958 (Version 1)
Quarter: 2025Q2

REPORT INFORMATION
  Report Type: Report from Study
  Country: KR (occurrence: KR)
  Receive Date: 20250626
  Receipt Date: 20250626
  Transmission Date: 20250716
  Serious: Yes (Death, Hospitalization)
  Sender: PFIZER
  Company Number: KR-PFIZER INC-PV202500074414

PATIENT
  Sex: Female

DRUGS (9)
  1. PACLITAXEL [Suspect]
     Active Substance: PACLITAXEL
     Indication: Cervix carcinoma recurrent
     Dosage: 135 MG/M2 DILUTED IN 500 ML OF 5% DEXTROSE WATER WAS INFUSED, OVER 3-H PERIOD, EVERY 3 WEEKS
     Route: 042
  2. CISPLATIN [Suspect]
     Active Substance: CISPLATIN
     Indication: Cervix carcinoma recurrent
     Dosage: 50 MG/M2, DILUTED IN 150 ML OF 0.9% SALINE OVER 1-H ON DAY 1, EVERY 3 WEEKS
     Route: 042
  3. IFOSFAMIDE [Suspect]
     Active Substance: IFOSFAMIDE
     Indication: Cervix carcinoma recurrent
     Dosage: 1500 MG/M2, OVER 3 H ON DAYS 1-3, EVERY 3 WEEKS
     Route: 042
  4. DEXAMETHASONE [Concomitant]
     Active Substance: DEXAMETHASONE
  5. CIMETIDINE [Concomitant]
     Active Substance: CIMETIDINE
  6. DIPHENHYDRAMINE [Concomitant]
     Active Substance: DIPHENHYDRAMINE
  7. SODIUM CHLORIDE [Concomitant]
     Active Substance: SODIUM CHLORIDE
  8. MANNITOL [Concomitant]
     Active Substance: MANNITOL
  9. MESNA [Concomitant]
     Active Substance: MESNA
     Indication: Prophylaxis

REACTIONS (2)
  - Pancytopenia [Fatal]
  - Acute kidney injury [Fatal]
